FAERS Safety Report 19081785 (Version 1)
Quarter: 2021Q2

REPORT INFORMATION
  Report Type: Spontaneous
  Country: US (occurrence: US)
  Receive Date: 20210401
  Receipt Date: 20210401
  Transmission Date: 20210717
  Serious: Yes (Other)
  Sender: FDA-Public Use
  Company Number: US-SA-2021SA103089

PATIENT
  Age: 72 Year
  Sex: Male

DRUGS (11)
  1. DUPIXENT [Suspect]
     Active Substance: DUPILUMAB
     Indication: ASTHMA
  2. AZELASTINE. [Concomitant]
     Active Substance: AZELASTINE HYDROCHLORIDE
     Dosage: 137?50MC
  3. LEVALBUTEROL TARTRATE. [Concomitant]
     Active Substance: LEVALBUTEROL TARTRATE
  4. PRADAXA [Concomitant]
     Active Substance: DABIGATRAN ETEXILATE MESYLATE
  5. ROSUVASTATIN. [Concomitant]
     Active Substance: ROSUVASTATIN
  6. GLIPIZIDE. [Concomitant]
     Active Substance: GLIPIZIDE
  7. XIIDRA [Concomitant]
     Active Substance: LIFITEGRAST
  8. MYRBETRIQ [Concomitant]
     Active Substance: MIRABEGRON
  9. RESTASIS [Concomitant]
     Active Substance: CYCLOSPORINE
  10. CARVEDILOL. [Concomitant]
     Active Substance: CARVEDILOL
  11. SYMBICORT [Concomitant]
     Active Substance: BUDESONIDE\FORMOTEROL FUMARATE DIHYDRATE

REACTIONS (5)
  - Depression [Recovering/Resolving]
  - Cardiac failure congestive [Unknown]
  - Dyspnoea [Unknown]
  - Bronchial secretion retention [Unknown]
  - Lung disorder [Unknown]

NARRATIVE: CASE EVENT DATE: 202004
